FAERS Safety Report 13018797 (Version 2)
Quarter: 2016Q4

REPORT INFORMATION
  Report Type: Spontaneous
  Country: US (occurrence: US)
  Receive Date: 20161212
  Receipt Date: 20161212
  Transmission Date: 20170207
  Serious: Yes (Hospitalization)
  Sender: FDA-Public Use
  Company Number: US-NOVOPROD-503747

PATIENT
  Age: 73 Year
  Sex: Female
  Weight: 99.77 kg

DRUGS (4)
  1. NOVOLIN R [Suspect]
     Active Substance: INSULIN HUMAN
     Indication: TYPE 2 DIABETES MELLITUS
     Dosage: SLIDING SCALE
     Route: 058
  2. NOVOLIN N [Suspect]
     Active Substance: INSULIN HUMAN
     Indication: TYPE 2 DIABETES MELLITUS
     Dosage: 50 U, UNK
     Route: 058
  3. NOVOLIN N [Suspect]
     Active Substance: INSULIN HUMAN
     Dosage: 55 U, UNK
     Route: 058
  4. NOVOLIN N [Suspect]
     Active Substance: INSULIN HUMAN
     Dosage: 60 U, UNK
     Route: 058

REACTIONS (7)
  - Blood glucose increased [Not Recovered/Not Resolved]
  - Glycosylated haemoglobin increased [Unknown]
  - Fall [Recovered/Resolved]
  - Joint dislocation [Recovering/Resolving]
  - Weight loss poor [Not Recovered/Not Resolved]
  - Hypoglycaemic unconsciousness [Recovered/Resolved]
  - Foot fracture [Recovered/Resolved]

NARRATIVE: CASE EVENT DATE: 2016
